FAERS Safety Report 9270267 (Version 3)
Quarter: 2013Q2

REPORT INFORMATION
  Report Type: Report from Study
  Country: GR (occurrence: GR)
  Receive Date: 20130503
  Receipt Date: 20130621
  Transmission Date: 20140414
  Serious: Yes (Death, Life-Threatening, Hospitalization)
  Sender: FDA-Public Use
  Company Number: GR-ABBOTT-13P-066-1055777-00

PATIENT
  Age: 63 Year
  Sex: Female
  Weight: 83 kg

DRUGS (24)
  1. HUMIRA [Suspect]
     Indication: HIDRADENITIS
     Route: 058
     Dates: start: 20121123, end: 20130220
  2. ANGORON [Concomitant]
     Indication: ATRIAL FIBRILLATION
     Dosage: 300MG IN 30MIN, THE REST (900MG) IN 24 HOURS
     Route: 042
     Dates: start: 20121107, end: 20121108
  3. ANGORON [Concomitant]
     Route: 048
     Dates: start: 20121109, end: 20121112
  4. ANGORON [Concomitant]
     Route: 048
     Dates: start: 20121113, end: 20130321
  5. OSTELIN [Concomitant]
     Indication: HYPERPARATHYROIDISM
     Route: 058
     Dates: start: 20121018, end: 20130321
  6. ARANESP [Concomitant]
     Indication: MALABSORPTION
     Route: 058
     Dates: start: 2010, end: 20130321
  7. ARANESP [Concomitant]
     Indication: GASTRIC BYPASS
  8. RESOFERON [Concomitant]
     Indication: IRON DEFICIENCY
     Route: 048
     Dates: start: 2004, end: 20130321
  9. RESOFERON [Concomitant]
     Indication: MALABSORPTION
  10. RESOFERON [Concomitant]
     Indication: GASTRIC BYPASS
  11. FILICINE [Concomitant]
     Indication: MALABSORPTION
     Route: 048
     Dates: start: 2004, end: 20130321
  12. FILICINE [Concomitant]
     Indication: GASTRIC BYPASS
  13. ONE ALPHA [Concomitant]
     Indication: OSTEOPOROSIS
     Route: 048
     Dates: start: 2003, end: 20130321
  14. MEGA CALCIUM [Concomitant]
     Indication: OSTEOPOROSIS
     Route: 048
     Dates: start: 2003, end: 20130321
  15. NEUROBION [Concomitant]
     Indication: MALABSORPTION
     Dosage: 100+200+0.2MG ONCE DAILY
     Route: 048
     Dates: start: 20121114, end: 20130223
  16. NEUROBION [Concomitant]
     Indication: GASTRIC BYPASS
  17. SALOSPIR [Concomitant]
     Indication: ATRIAL FIBRILLATION
     Route: 048
     Dates: start: 20121130, end: 20130223
  18. SODIUM BICARBONATE [Concomitant]
     Indication: RENAL TUBULAR ACIDOSIS
     Route: 048
     Dates: start: 2011, end: 20130223
  19. SODIUM BICARBONATE [Concomitant]
     Indication: GASTRIC BYPASS
  20. RIFINAH [Concomitant]
     Indication: ANTIBIOTIC PROPHYLAXIS
     Route: 048
     Dates: start: 20121018, end: 20130118
  21. VITAMIN D3 [Concomitant]
     Indication: OSTEOPOROSIS
     Route: 048
     Dates: start: 2011, end: 20130321
  22. T4 [Concomitant]
     Indication: AUTOIMMUNE THYROIDITIS
     Route: 048
     Dates: start: 20121221, end: 20130118
  23. T4 [Concomitant]
     Route: 048
     Dates: start: 20121221, end: 20130118
  24. T4 [Concomitant]
     Route: 048
     Dates: start: 20130118, end: 20130321

REACTIONS (7)
  - Autoimmune pancreatitis [Fatal]
  - Sepsis [Unknown]
  - Coagulopathy [Unknown]
  - Cardiac arrest [Unknown]
  - Respiratory failure [Unknown]
  - Cholangitis [Unknown]
  - Septic shock [Unknown]
